FAERS Safety Report 8089213-8 (Version None)
Quarter: 2012Q1

REPORT INFORMATION
  Report Type: 
  Country: None (occurrence: None)
  Receive Date: 20120128
  Receipt Date: 20110616
  Transmission Date: 20120608
  Serious: Yes (Other)
  Sender: FDA-Public Use
  Company Number: US-ABBOTT-11P-163-0733021-00

PATIENT
  Sex: Female
  Weight: 62.652 kg

DRUGS (1)
  1. HUMIRA [Suspect]
     Indication: PRODUCT USED FOR UNKNOWN INDICATION
     Dates: start: 20100701

REACTIONS (5)
  - SQUAMOUS CELL CARCINOMA OF SKIN [None]
  - FALL [None]
  - BASAL CELL CARCINOMA [None]
  - LIGAMENT RUPTURE [None]
  - FOOT FRACTURE [None]
